FAERS Safety Report 4923519-3 (Version None)
Quarter: 2006Q1

REPORT INFORMATION
  Report Type: 
  Country: None (occurrence: None)
  Receive Date: 20060227
  Receipt Date: 20060221
  Transmission Date: 20060701
  Serious: Yes (Death)
  Sender: FDA-Public Use
  Company Number: 2006SE01045

PATIENT
  Age: 14959 Day
  Sex: Female

DRUGS (9)
  1. SEROQUEL [Suspect]
     Indication: PSYCHOTIC DISORDER
     Dosage: 300 + 500 MG DAILY
     Route: 048
     Dates: start: 20050511
  2. REMERON [Suspect]
     Indication: DEPRESSION
     Route: 065
     Dates: start: 20050507
  3. EFFEXOR XR [Suspect]
     Indication: DEPRESSION
     Route: 048
  4. AMLODIPINE [Concomitant]
     Indication: BLOOD PRESSURE INCREASED
     Route: 048
  5. ALBYL-E [Concomitant]
     Route: 048
  6. XANOR [Concomitant]
     Indication: ANXIETY
     Route: 048
  7. VIVAL [Concomitant]
     Indication: ANXIETY
     Route: 048
  8. LEVONORGESTREL AND ETHINYL ESTRADIOL [Concomitant]
     Route: 048
  9. ZOPICLONE [Concomitant]
     Indication: SLEEP DISORDER
     Route: 065

REACTIONS (7)
  - ACUTE MYOCARDIAL INFARCTION [None]
  - ANXIETY [None]
  - CONVULSION [None]
  - DEPRESSED LEVEL OF CONSCIOUSNESS [None]
  - DRUG INEFFECTIVE [None]
  - PALLOR [None]
  - VENTRICULAR FIBRILLATION [None]
